FAERS Safety Report 18424732 (Version 2)
Quarter: 2020Q4

REPORT INFORMATION
  Report Type: Spontaneous
  Country: EG (occurrence: EG)
  Receive Date: 20201026
  Receipt Date: 20201127
  Transmission Date: 20210114
  Serious: Yes (Death, Life-Threatening, Congenital Anomaly, Other)
  Sender: FDA-Public Use
  Company Number: EG-SA-2020SA298488

PATIENT

DRUGS (2)
  1. LEVETIRACETAM. [Concomitant]
     Active Substance: LEVETIRACETAM
     Indication: SEIZURE
  2. CEREZYME [Suspect]
     Active Substance: IMIGLUCERASE
     Indication: GAUCHER^S DISEASE TYPE I
     Dosage: 40 U/KG (5 VIALS), QOW
     Route: 042
     Dates: start: 2014

REACTIONS (3)
  - Status epilepticus [Fatal]
  - Seizure [Fatal]
  - Mouth haemorrhage [Fatal]
